FAERS Safety Report 8606774-8 (Version None)
Quarter: 2012Q2

REPORT INFORMATION
  Report Type: 
  Country: None (occurrence: None)
  Receive Date: 20120423
  Receipt Date: 20091008
  Transmission Date: 20120825
  Serious: Yes (Hospitalization)
  Sender: FDA-Public Use
  Company Number: PHEH2009US13441

PATIENT
  Age: 79 Year
  Sex: Female

DRUGS (1)
  1. EXJADE [Suspect]
     Dosage: 500 MG, QD, ORAL
     Route: 048
     Dates: start: 20090812, end: 20090930

REACTIONS (2)
  - PROTEIN TOTAL INCREASED [None]
  - RENAL DISORDER [None]
